FAERS Safety Report 8818244 (Version 2)
Quarter: 2012Q4

REPORT INFORMATION
  Report Type: 
  Country: US (occurrence: US)
  Receive Date: 20121001
  Receipt Date: 20121024
  Transmission Date: 20130627
  Serious: Yes (Hospitalization)
  Sender: FDA-Public Use
  Company Number: US-GLAXOSMITHKLINE-A0995136A

PATIENT
  Age: 55 Year
  Sex: Female

DRUGS (2)
  1. HYCAMTIN [Suspect]
     Indication: PRODUCT USED FOR UNKNOWN INDICATION
     Dosage: 1MG Unknown
     Route: 065
  2. CHEMOTHERAPY [Suspect]

REACTIONS (1)
  - Malaise [Unknown]
